FAERS Safety Report 5663715-3 (Version None)
Quarter: 2008Q1

REPORT INFORMATION
  Report Type: 
  Country: None (occurrence: None)
  Receive Date: 20080313
  Receipt Date: 20080312
  Transmission Date: 20080703
  Serious: No
  Sender: FDA-Public Use
  Company Number: US-BAXTER-2008BH002242

PATIENT
  Age: 66 Year
  Sex: Male
  Weight: 86 kg

DRUGS (5)
  1. HEPARIN SODIUM [Suspect]
     Indication: PROPHYLAXIS
     Route: 033
     Dates: end: 20080201
  2. LEVOXYL [Concomitant]
     Indication: THYROID DISORDER
     Route: 048
  3. AMLODIPINE [Concomitant]
     Indication: HYPERTENSION
     Route: 048
  4. ENALAPRIL MALEATE [Concomitant]
     Indication: HYPERTENSION
     Route: 048
  5. OXYCODONE HCL [Concomitant]
     Indication: PAIN
     Route: 048

REACTIONS (1)
  - DYSPNOEA [None]
